FAERS Safety Report 9203163 (Version 2)
Quarter: 2013Q2

REPORT INFORMATION
  Report Type: Spontaneous
  Country: FR (occurrence: None)
  Receive Date: 20130329
  Receipt Date: 20130509
  Transmission Date: 20140414
  Serious: Yes (Death, Hospitalization)
  Sender: FDA-Public Use
  Company Number: 2013MPI00171

PATIENT
  Age: 61 Year
  Sex: Male

DRUGS (6)
  1. BRENTUXIMAB VEDOTIN (BRENTUXIMAB VEDOTIN) INJECTION [Suspect]
     Indication: HODGKIN^S DISEASE REFRACTORY
     Dosage: 1.8 MG/KG, Q21D, INTRAVENOUS
     Dates: start: 20130124, end: 20130214
  2. CLOPIDOGREL (CLOPIDOGREL SULFATE) [Concomitant]
  3. CRESTOR (ROSUVASTATIN CALCIUM) [Concomitant]
  4. KARDEGIC (ACETYLSALICYLATE LYSINE, ACETYLSALICYLIC ACID) [Concomitant]
  5. SECTRAL (ACEBUTOLOL HYDROCHLORIDE) [Concomitant]
  6. STILNOX (ZOLPIDEM TARTRATE) [Concomitant]

REACTIONS (13)
  - Haemorrhagic stroke [None]
  - Thrombocytopenia [None]
  - Mucosal inflammation [None]
  - General physical health deterioration [None]
  - Neutropenia [None]
  - Anaemia [None]
  - Pyrexia [None]
  - Hypokalaemia [None]
  - Hypercalcaemia [None]
  - Liver function test abnormal [None]
  - Nervous system disorder [None]
  - Epilepsy [None]
  - Loss of consciousness [None]
